FAERS Safety Report 11934372 (Version 1)
Quarter: 2016Q1

REPORT INFORMATION
  Report Type: Spontaneous
  Country: US (occurrence: None)
  Receive Date: 20160120
  Receipt Date: 20160120
  Transmission Date: 20160526
  Serious: Yes (Hospitalization, Other)
  Sender: FDA-Public Use
  Company Number: None

PATIENT
  Age: 61 Year
  Sex: Female
  Weight: 83.92 kg

DRUGS (10)
  1. MULTI-VIATMINS [Concomitant]
  2. KELP FOR IODINE [Concomitant]
  3. DULOXETINE 30 MG APOTEX CORP. [Suspect]
     Active Substance: DULOXETINE
     Indication: NEURALGIA
     Route: 048
     Dates: start: 20150916, end: 20150918
  4. MAGNESIUM [Concomitant]
     Active Substance: MAGNESIUM
  5. LEVOTHYROXINE. [Concomitant]
     Active Substance: LEVOTHYROXINE
  6. D [Concomitant]
  7. HYALURONIC ACID [Concomitant]
     Active Substance: HYALURONIC ACID
  8. GLUCOSAMINE/CHONDRITIN [Concomitant]
  9. FLAXSEED [Concomitant]
     Active Substance: FLAX SEED
  10. VITAMIN B12 [Concomitant]
     Active Substance: CYANOCOBALAMIN

REACTIONS (2)
  - Cardiac disorder [None]
  - Chest discomfort [None]

NARRATIVE: CASE EVENT DATE: 20150919
